FAERS Safety Report 21307942 (Version 1)
Quarter: 2022Q3

REPORT INFORMATION
  Report Type: Spontaneous
  Country: US (occurrence: None)
  Receive Date: 20220907
  Receipt Date: 20220907
  Transmission Date: 20221026
  Serious: No
  Sender: FDA-Public Use
  Company Number: None

PATIENT
  Age: 68 Year
  Sex: Male
  Weight: 79.38 kg

DRUGS (12)
  1. LENVIMA [Suspect]
     Active Substance: LENVATINIB
     Dates: start: 20220803
  2. AMOXICILLIN [Concomitant]
     Active Substance: AMOXICILLIN
  3. CELECOXIB Oral Capsule [Concomitant]
  4. ELIQUIS ORAL [Concomitant]
  5. EVEROLIMUS [Concomitant]
  6. GABAPENTIN [Concomitant]
  7. LENVIMA [Concomitant]
  8. LIPITOR ORAL [Concomitant]
  9. LOSARTAN POTASSIUM [Concomitant]
  10. OMEPRAZOLE ORAL [Concomitant]
  11. OXYCODONE HYDROCHLORIDE [Concomitant]
     Active Substance: OXYCODONE HYDROCHLORIDE
  12. PROCHLORPERAZINE MALEATE ORAL [Concomitant]

REACTIONS (1)
  - Blood pressure increased [None]

NARRATIVE: CASE EVENT DATE: 20220829
